FAERS Safety Report 15813687 (Version 3)
Quarter: 2019Q3

REPORT INFORMATION
  Report Type: Spontaneous
  Country: US (occurrence: US)
  Receive Date: 20190111
  Receipt Date: 20190725
  Transmission Date: 20191004
  Serious: No
  Sender: FDA-Public Use
  Company Number: US-VIFOR (INTERNATIONAL) INC.-VIT-2019-00173

PATIENT
  Age: 74 Year
  Sex: Female
  Weight: 68.1 kg

DRUGS (13)
  1. GLUCOSAMINE CHONDROITIN COMPLEX [Concomitant]
     Active Substance: CHONDROITIN SULFATE (BOVINE)\GLUCOSAMINE HYDROCHLORIDE
  2. VELTASSA [Suspect]
     Active Substance: PATIROMER
     Route: 048
  3. CULTURELLE [Concomitant]
     Active Substance: LACTOBACILLUS RHAMNOSUS
  4. VELTASSA [Suspect]
     Active Substance: PATIROMER
     Indication: HYPERKALAEMIA
     Route: 048
     Dates: start: 20161011
  5. KIONEX [Concomitant]
     Active Substance: SODIUM POLYSTYRENE SULFONATE
  6. MAGNESIUM [Concomitant]
     Active Substance: MAGNESIUM
  7. IRON [Concomitant]
     Active Substance: IRON
  8. LEVOXYL [Concomitant]
     Active Substance: LEVOTHYROXINE SODIUM
  9. PROCRIT [Concomitant]
     Active Substance: ERYTHROPOIETIN
  10. NOVOLOG [Concomitant]
     Active Substance: INSULIN ASPART
  11. VELTASSA [Suspect]
     Active Substance: PATIROMER
     Route: 048
  12. FUROSEMIDE. [Concomitant]
     Active Substance: FUROSEMIDE
  13. LOVASTATIN. [Concomitant]
     Active Substance: LOVASTATIN

REACTIONS (5)
  - Flatulence [Unknown]
  - Blood potassium increased [Recovered/Resolved]
  - Treatment noncompliance [Unknown]
  - Off label use [Unknown]
  - Eye disorder [Unknown]

NARRATIVE: CASE EVENT DATE: 20180625
